FAERS Safety Report 16173407 (Version 1)
Quarter: 2019Q2

REPORT INFORMATION
  Report Type: Spontaneous
  Country: US (occurrence: US)
  Receive Date: 20190409
  Receipt Date: 20190409
  Transmission Date: 20190711
  Serious: No
  Sender: FDA-Public Use
  Company Number: US-HTU-2019US018471

PATIENT
  Sex: Female

DRUGS (1)
  1. VALCHLOR [Suspect]
     Active Substance: MECHLORETHAMINE
     Indication: CUTANEOUS T-CELL LYMPHOMA
     Dosage: UNK
     Route: 061
     Dates: start: 20190124

REACTIONS (3)
  - Condition aggravated [Unknown]
  - Pruritus [Unknown]
  - Rash [Unknown]
